FAERS Safety Report 4886355-2 (Version None)
Quarter: 2006Q1

REPORT INFORMATION
  Report Type: 
  Country: None (occurrence: None)
  Receive Date: 20060120
  Receipt Date: 20060110
  Transmission Date: 20060701
  Serious: Yes (Hospitalization, Disabling, Other)
  Sender: FDA-Public Use
  Company Number: US-JNJFOC-20050500070

PATIENT
  Sex: Male
  Weight: 54.89 kg

DRUGS (4)
  1. RISPERDAL [Suspect]
     Route: 048
  2. RISPERDAL [Suspect]
     Route: 048
  3. RISPERDAL [Suspect]
     Route: 048
  4. DEPAKOTE [Concomitant]
     Route: 048

REACTIONS (22)
  - ABDOMINAL PAIN UPPER [None]
  - ANXIETY [None]
  - APPENDICITIS [None]
  - ASTHMA [None]
  - BACK PAIN [None]
  - BLOOD ALKALINE PHOSPHATASE INCREASED [None]
  - BLOOD AMYLASE INCREASED [None]
  - BLOOD GLUCOSE DECREASED [None]
  - BLOOD URINE PRESENT [None]
  - BRONCHITIS [None]
  - CONSTIPATION [None]
  - DIABETES MELLITUS INSULIN-DEPENDENT [None]
  - DIABETIC KETOACIDOSIS [None]
  - EMOTIONAL DISTRESS [None]
  - HEPATOMEGALY [None]
  - LOSS OF CONSCIOUSNESS [None]
  - MAJOR DEPRESSION [None]
  - PAIN [None]
  - PHARYNGITIS STREPTOCOCCAL [None]
  - PNEUMONIA [None]
  - SINUSITIS [None]
  - WEIGHT DECREASED [None]
